FAERS Safety Report 19569169 (Version 1)
Quarter: 2021Q3

REPORT INFORMATION
  Report Type: Spontaneous
  Country: JP (occurrence: JP)
  Receive Date: 20210716
  Receipt Date: 20210716
  Transmission Date: 20211014
  Serious: Yes (Other)
  Sender: FDA-Public Use
  Company Number: JP-ROCHE-2871803

PATIENT
  Sex: Male

DRUGS (2)
  1. LUCENTIS [Suspect]
     Active Substance: RANIBIZUMAB
     Route: 031
     Dates: start: 20170928
  2. LUCENTIS [Suspect]
     Active Substance: RANIBIZUMAB
     Indication: RETINOPATHY OF PREMATURITY
     Route: 031
     Dates: start: 20170803

REACTIONS (3)
  - Disease recurrence [Unknown]
  - Therapeutic product effect incomplete [Unknown]
  - Retinopathy of prematurity [Unknown]
